FAERS Safety Report 4768215-0 (Version None)
Quarter: 2005Q3

REPORT INFORMATION
  Report Type: 
  Country: None (occurrence: None)
  Receive Date: 20050913
  Receipt Date: 20050829
  Transmission Date: 20060218
  Serious: Yes (Hospitalization)
  Sender: FDA-Public Use
  Company Number: 2005S1007051

PATIENT
  Age: 59 Year
  Sex: Female
  Weight: 68.0396 kg

DRUGS (23)
  1. FENTANYL [Suspect]
     Indication: PAIN
     Dosage: 10 MCG/HR; Q3D; TDER
     Route: 062
     Dates: start: 20050518, end: 20050518
  2. OXYCODONE HYDROCHLORIDE` [Concomitant]
  3. CAFGEINE /BUTALBITAL/PARACETAMOL [Concomitant]
  4. MONTELUKAST SODIUM [Concomitant]
  5. ALPRAZOLAM [Concomitant]
  6. CODEINE PHOSPHATE/PROMETHAZINE HYDROCHLORIDE [Concomitant]
  7. SETRALINE HYDROCHLORIDE [Concomitant]
  8. CARISOPRODOL [Concomitant]
  9. LEVOFLOXACIN [Concomitant]
  10. ZOLPIDEM TARTRATE [Concomitant]
  11. GUAIFENESIN/HYDROCODONE BITARTRATE [Concomitant]
  12. PROCHLORPERAZINE EDISYLATE [Concomitant]
  13. DONEPEZIL HYDROCHLORIDE [Concomitant]
  14. GUAIFENESIN/PSEUDOEPHEDRINE HYDROCHLORIDE [Concomitant]
  15. METOCLOPRAMIDE HYDROCHLORIDE [Concomitant]
  16. ALBUTEROL SULFATE HFA [Concomitant]
  17. CLINDOMYCIN [Concomitant]
  18. AMITRIPTYLINE HCL [Concomitant]
  19. FLUTICASONE PROPIONATE/SALMETEROL XINAFOATE [Concomitant]
  20. ALENDRONATE SODIUM [Concomitant]
  21. NAPROXEN [Concomitant]
  22. RANITIDINE [Concomitant]
  23. FLUTICASONE PROPIONATE [Concomitant]

REACTIONS (6)
  - DISORIENTATION [None]
  - EUPHORIC MOOD [None]
  - HYPERHIDROSIS [None]
  - OVERDOSE [None]
  - PHARMACEUTICAL PRODUCT COMPLAINT [None]
  - SOMNOLENCE [None]
